FAERS Safety Report 8221844-4 (Version None)
Quarter: 2012Q1

REPORT INFORMATION
  Report Type: 
  Country: None (occurrence: None)
  Receive Date: 20120320
  Receipt Date: 20120306
  Transmission Date: 20120608
  Serious: Yes (Death)
  Sender: FDA-Public Use
  Company Number: IT-CELGENEUS-083-21880-12031003

PATIENT

DRUGS (2)
  1. CYTARABINE [Concomitant]
     Dosage: 40 MILLIGRAM
     Route: 058
  2. REVLIMID [Suspect]
     Dosage: 10 MILLIGRAM
     Route: 048

REACTIONS (5)
  - BONE MARROW FAILURE [None]
  - NO THERAPEUTIC RESPONSE [None]
  - ACUTE MYELOID LEUKAEMIA [None]
  - CARDIAC FAILURE ACUTE [None]
  - MULTI-ORGAN FAILURE [None]
